FAERS Safety Report 5561435-7 (Version None)
Quarter: 2007Q4

REPORT INFORMATION
  Report Type: 
  Country: None (occurrence: None)
  Receive Date: 20071215
  Receipt Date: 20071022
  Transmission Date: 20080405
  Serious: No
  Sender: FDA-Public Use
  Company Number: US-AMGEN-KDL248274

PATIENT
  Sex: Female

DRUGS (5)
  1. ENBREL [Suspect]
     Indication: RHEUMATOID ARTHRITIS
     Route: 058
     Dates: start: 20070814
  2. ENBREL [Suspect]
     Indication: SYSTEMIC LUPUS ERYTHEMATOSUS
  3. ENBREL [Suspect]
     Indication: DRUG USE FOR UNKNOWN INDICATION
  4. METHOTREXATE [Suspect]
     Route: 048
     Dates: start: 20070301
  5. PLAQUENIL [Concomitant]
     Route: 048
     Dates: start: 20070201

REACTIONS (5)
  - ANIMAL SCRATCH [None]
  - FATIGUE [None]
  - IMPAIRED HEALING [None]
  - WOUND COMPLICATION [None]
  - WOUND SECRETION [None]
